FAERS Safety Report 20678982 (Version 1)
Quarter: 2022Q2

REPORT INFORMATION
  Report Type: Spontaneous
  Country: CA (occurrence: CA)
  Receive Date: 20220406
  Receipt Date: 20220406
  Transmission Date: 20220721
  Serious: Yes (Other)
  Sender: FDA-Public Use
  Company Number: CA-SAMSUNG BIOEPIS-SB-2022-07931

PATIENT
  Age: 37 Year
  Sex: Female
  Weight: 67 kg

DRUGS (2)
  1. INFLIXIMAB [Suspect]
     Active Substance: INFLIXIMAB
     Indication: Colitis ulcerative
     Route: 042
  2. PREDNISONE [Concomitant]
     Active Substance: PREDNISONE
     Indication: Product used for unknown indication
     Route: 048

REACTIONS (7)
  - Body temperature fluctuation [Unknown]
  - Condition aggravated [Unknown]
  - Diarrhoea [Unknown]
  - Haematochezia [Unknown]
  - Impaired quality of life [Unknown]
  - Intentional product use issue [Unknown]
  - Off label use [Unknown]
